FAERS Safety Report 25619838 (Version 2)
Quarter: 2025Q3

REPORT INFORMATION
  Report Type: Report from Study
  Country: US (occurrence: US)
  Receive Date: 20250730
  Receipt Date: 20250919
  Transmission Date: 20251020
  Serious: Yes (Other)
  Sender: ABBVIE
  Company Number: US-ABBVIE-6390688

PATIENT
  Age: 73 Year
  Sex: Male

DRUGS (2)
  1. MAVYRET [Suspect]
     Active Substance: GLECAPREVIR\PIBRENTASVIR
     Indication: Acute hepatitis C
     Route: 048
     Dates: start: 20230510
  2. VOSEVI [Suspect]
     Active Substance: SOFOSBUVIR\VELPATASVIR\VOXILAPREVIR
     Indication: Product used for unknown indication
     Route: 065

REACTIONS (13)
  - Hepatic cirrhosis [Unknown]
  - Cardiac disorder [Unknown]
  - Product use complaint [Unknown]
  - Choking [Unknown]
  - Wrong technique in product usage process [Unknown]
  - Drug ineffective [Not Recovered/Not Resolved]
  - Foreign body in throat [Unknown]
  - Anaemia [Unknown]
  - Platelet count decreased [Unknown]
  - Protein total abnormal [Unknown]
  - Haemorrhagic disorder [Unknown]
  - Blood pressure increased [Unknown]
  - Expired product administered [Unknown]

NARRATIVE: CASE EVENT DATE: 20250801
